FAERS Safety Report 16672131 (Version 58)
Quarter: 2025Q1

REPORT INFORMATION
  Report Type: Spontaneous
  Country: DE (occurrence: DE)
  Receive Date: 20190806
  Receipt Date: 20250205
  Transmission Date: 20250409
  Serious: Yes (Death, Life-Threatening, Hospitalization, Other)
  Sender: AUROBINDO
  Company Number: DE-002147023-PHHY2019DE168419

PATIENT
  Age: 79 Year
  Sex: Female
  Weight: 55 kg

DRUGS (34)
  1. FULVESTRANT [Suspect]
     Active Substance: FULVESTRANT
     Indication: Product used for unknown indication
     Route: 065
     Dates: start: 20190819
  2. FULVESTRANT [Suspect]
     Active Substance: FULVESTRANT
     Route: 048
     Dates: start: 20200106
  3. LETROZOLE [Suspect]
     Active Substance: LETROZOLE
     Indication: Breast cancer metastatic
     Dosage: 2.5 MILLIGRAM, ONCE A DAY,2.5 MG, QD
     Route: 048
     Dates: start: 20190704, end: 20190819
  4. LETROZOLE [Suspect]
     Active Substance: LETROZOLE
     Indication: Hormone receptor positive HER2 negative breast cancer
     Dosage: 2.5 MILLIGRAM, ONCE A DAY,2.5 MG, QD
     Route: 048
     Dates: start: 20190819
  5. LETROZOLE [Suspect]
     Active Substance: LETROZOLE
     Indication: Breast cancer
  6. PALBOCICLIB [Suspect]
     Active Substance: PALBOCICLIB
     Indication: Breast cancer metastatic
     Dosage: 100 MILLIGRAM, ONCE A DAY(SCHEME 21 DAYS INTAKE, 7 DAYS PAUSE)
     Route: 065
     Dates: end: 20200601
  7. PALBOCICLIB [Suspect]
     Active Substance: PALBOCICLIB
     Route: 048
     Dates: start: 20200114, end: 20200601
  8. PALBOCICLIB [Suspect]
     Active Substance: PALBOCICLIB
     Dosage: 100 MILLIGRAM, ONCE A DAY, (SCHEME 21 DAYS INTAKE, 7 DAYS PAUSE)
     Route: 048
     Dates: start: 20200603, end: 20200728
  9. PALBOCICLIB [Suspect]
     Active Substance: PALBOCICLIB
     Route: 048
     Dates: start: 20200812, end: 20210907
  10. PALBOCICLIB [Suspect]
     Active Substance: PALBOCICLIB
     Dosage: 100 MILLIGRAM, ONCE A DAY
     Route: 048
     Dates: start: 20200909, end: 20201103
  11. PALBOCICLIB [Suspect]
     Active Substance: PALBOCICLIB
     Route: 048
     Dates: start: 20220901, end: 20221102
  12. PALBOCICLIB [Suspect]
     Active Substance: PALBOCICLIB
     Route: 048
     Dates: start: 20210909, end: 20211103
  13. PALBOCICLIB [Suspect]
     Active Substance: PALBOCICLIB
     Dosage: 100 MILLIGRAM, ONCE A DAY, (SCHEME 21 DAYS INTAKE, 7 DAYS PAUSE)
     Route: 048
     Dates: start: 20211111, end: 20220823
  14. PALBOCICLIB [Suspect]
     Active Substance: PALBOCICLIB
     Route: 048
     Dates: start: 20221116, end: 20221129
  15. PALBOCICLIB [Suspect]
     Active Substance: PALBOCICLIB
     Route: 048
     Dates: start: 20221207
  16. KISQALI [Suspect]
     Active Substance: RIBOCICLIB
     Indication: Breast cancer metastatic
     Dosage: 600 MILLIGRAM, ONCE A DAY (21 DAYS INTAKE, 7 DAYS PAUSE)
     Route: 048
     Dates: start: 20190704, end: 20190717
  17. KISQALI [Suspect]
     Active Substance: RIBOCICLIB
     Indication: Hormone receptor positive HER2 negative breast cancer
     Dosage: UNK, ONCE A DAY
     Route: 048
     Dates: start: 20190718, end: 20190807
  18. KISQALI [Suspect]
     Active Substance: RIBOCICLIB
     Dosage: 400 MILLIGRAM, ONCE A DAY (21 DAYS INTAKE, 7 DAYS PAUSE)
     Route: 048
     Dates: start: 20190808, end: 20190808
  19. KISQALI [Suspect]
     Active Substance: RIBOCICLIB
     Dosage: UNK, ONCE A DAY
     Route: 048
     Dates: start: 20190809, end: 20190809
  20. KISQALI [Suspect]
     Active Substance: RIBOCICLIB
     Route: 048
     Dates: start: 20190808, end: 20190808
  21. TORSEMIDE [Suspect]
     Active Substance: TORSEMIDE
     Indication: Atrial fibrillation
     Route: 065
     Dates: start: 20200727, end: 20220901
  22. TORSEMIDE [Suspect]
     Active Substance: TORSEMIDE
     Indication: Oedema peripheral
     Route: 065
     Dates: start: 20230801, end: 20230828
  23. TORSEMIDE [Suspect]
     Active Substance: TORSEMIDE
     Indication: Pleural effusion
     Route: 065
     Dates: start: 20230829
  24. TORSEMIDE [Suspect]
     Active Substance: TORSEMIDE
     Indication: Cardiac failure
     Route: 065
     Dates: start: 20230801, end: 20230828
  25. ASPIRIN [Concomitant]
     Active Substance: ASPIRIN
     Indication: Product used for unknown indication
     Dosage: 100 MILLIGRAM, ONCE A DAY AT NOON
     Route: 065
     Dates: start: 2000
  26. ASPIRIN [Concomitant]
     Active Substance: ASPIRIN
     Dosage: 100 MILLIGRAM, ONCE A DAY AT NOON
     Route: 065
     Dates: start: 2000
  27. ASPIRIN [Concomitant]
     Active Substance: ASPIRIN
     Dosage: 100 MILLIGRAM, ONCE A DAY AT NOON
     Route: 065
     Dates: start: 2000
  28. BISOPROLOL [Concomitant]
     Active Substance: BISOPROLOL
     Indication: Product used for unknown indication
     Dosage: 0.5 MILLIGRAM, ONCE A DAY (0.5 DOSAGE FORM, QD (10/25 MG), (ONCE PER DAY IN THE MORNING)
     Route: 065
     Dates: start: 2000
  29. BISOPROLOL FUMARATE\HYDROCHLOROTHIAZIDE [Concomitant]
     Active Substance: BISOPROLOL FUMARATE\HYDROCHLOROTHIAZIDE
     Indication: Product used for unknown indication
     Dosage: 0.5 DOSAGE FORM, ONCE A DAY (1X/DAY IN THE MORNING )
     Route: 065
     Dates: start: 2000
  30. CALCIUM [Concomitant]
     Active Substance: CALCIUM
     Indication: Product used for unknown indication
     Dosage: 400 MILLIGRAM, ONCE A DAY AT NOON
     Route: 065
     Dates: start: 2016
  31. CHOLECALCIFEROL [Concomitant]
     Active Substance: CHOLECALCIFEROL
     Indication: Product used for unknown indication
     Route: 065
     Dates: start: 2016
  32. LEVOTHYROXINE [Concomitant]
     Active Substance: LEVOTHYROXINE
     Indication: Product used for unknown indication
     Dosage: 88 MICROGRAM, ONCE A DAY IN THE MORNING
     Route: 065
     Dates: start: 2011
  33. Novalgin [Concomitant]
     Indication: Product used for unknown indication
     Route: 065
     Dates: start: 201904
  34. AMLODIPINE BESYLATE\OLMESARTAN MEDOXOMIL [Concomitant]
     Active Substance: AMLODIPINE BESYLATE\OLMESARTAN MEDOXOMIL
     Indication: Product used for unknown indication
     Dosage: 40 MILLIGRAM, ONCE A DAY IN THE MONING
     Route: 065
     Dates: start: 2019

REACTIONS (42)
  - Urosepsis [Fatal]
  - Septic shock [Fatal]
  - Asthenia [Unknown]
  - Blood creatinine increased [Not Recovered/Not Resolved]
  - Chronic kidney disease [Not Recovered/Not Resolved]
  - Nephrolithiasis [Recovered/Resolved]
  - Eastern Cooperative Oncology Group performance status worsened [Recovered/Resolved]
  - General physical health deterioration [Recovered/Resolved]
  - Leukopenia [Recovered/Resolved]
  - Neutropenia [Recovered/Resolved]
  - Nausea [Recovered/Resolved]
  - Thrombocytopenia [Recovered/Resolved]
  - Vomiting [Recovered/Resolved]
  - Glomerular filtration rate decreased [Recovering/Resolving]
  - Hyponatraemia [Recovered/Resolved]
  - Osteoarthritis [Recovered/Resolved]
  - Renal failure [Recovering/Resolving]
  - Renal impairment [Not Recovered/Not Resolved]
  - Acute kidney injury [Recovered/Resolved]
  - Hydronephrosis [Recovered/Resolved with Sequelae]
  - Atrial fibrillation [Recovered/Resolved]
  - Concomitant disease aggravated [Recovering/Resolving]
  - Cardiac failure [Recovered/Resolved with Sequelae]
  - Electrocardiogram QT prolonged [Recovered/Resolved]
  - Hypertension [Recovered/Resolved]
  - Anaemia [Not Recovered/Not Resolved]
  - Bladder tamponade [Recovered/Resolved with Sequelae]
  - Urinary retention [Recovered/Resolved with Sequelae]
  - Blood pressure increased [Not Recovered/Not Resolved]
  - Blood glucose increased [Recovering/Resolving]
  - Bronchitis [Recovered/Resolved]
  - Blood thyroid stimulating hormone increased [Recovered/Resolved]
  - Blood alkaline phosphatase increased [Recovered/Resolved]
  - C-reactive protein increased [Not Recovered/Not Resolved]
  - Cystitis [Recovered/Resolved]
  - Dry skin [Recovered/Resolved]
  - Dyspnoea [Not Recovered/Not Resolved]
  - Infection [Recovered/Resolved]
  - Oedema peripheral [Recovered/Resolved]
  - Pleural effusion [Recovered/Resolved with Sequelae]
  - Urinary tract infection [Recovered/Resolved]
  - Product use in unapproved indication [Unknown]

NARRATIVE: CASE EVENT DATE: 20190716
